FAERS Safety Report 11245814 (Version 8)
Quarter: 2021Q1

REPORT INFORMATION
  Report Type: Spontaneous
  Country: US (occurrence: US)
  Receive Date: 20150707
  Receipt Date: 20210310
  Transmission Date: 20210419
  Serious: Yes (Hospitalization, Other)
  Sender: FDA-Public Use
  Company Number: US-EMD SERONO-234466J08USA

PATIENT
  Age: 38 Year
  Sex: Female
  Weight: 82 kg

DRUGS (11)
  1. LASIX [Suspect]
     Active Substance: FUROSEMIDE
     Indication: CARDIAC FAILURE CONGESTIVE
     Dates: start: 2003
  2. ZESTRIL [Concomitant]
     Active Substance: LISINOPRIL
     Indication: CARDIAC FAILURE CONGESTIVE
     Dates: start: 2004, end: 2010
  3. LEVOTHYROXINE. [Concomitant]
     Active Substance: LEVOTHYROXINE
     Indication: HYPOTHYROIDISM
     Dates: start: 1992
  4. EFFEXOR [Concomitant]
     Active Substance: VENLAFAXINE HYDROCHLORIDE
     Indication: MULTIPLE SCLEROSIS
     Dates: start: 2007
  5. NEURONTIN [Concomitant]
     Active Substance: GABAPENTIN
     Indication: MULTIPLE SCLEROSIS
     Dates: start: 2007
  6. PREDNISONE. [Concomitant]
     Active Substance: PREDNISONE
     Indication: MULTIPLE SCLEROSIS
     Route: 048
  7. REBIF [Suspect]
     Active Substance: INTERFERON BETA-1A
     Indication: MULTIPLE SCLEROSIS
     Route: 058
     Dates: start: 20070629
  8. LOPRESSOR [Concomitant]
     Active Substance: METOPROLOL TARTRATE
     Indication: HYPERTENSION
     Dates: start: 2004, end: 2010
  9. LEVOTHYROXINE. [Concomitant]
     Active Substance: LEVOTHYROXINE
     Indication: GOITRE
  10. BABY ASPIRIN [Concomitant]
     Active Substance: ASPIRIN
     Indication: PRODUCT USED FOR UNKNOWN INDICATION
  11. LASIX [Suspect]
     Active Substance: FUROSEMIDE
     Indication: POLYURIA

REACTIONS (30)
  - Uterine haemorrhage [Unknown]
  - Heart valve incompetence [Recovering/Resolving]
  - Pulmonary hypertension [Recovered/Resolved]
  - Incision site pain [Not Recovered/Not Resolved]
  - Pulmonary embolism [Recovering/Resolving]
  - Dysmenorrhoea [Recovering/Resolving]
  - Post-traumatic stress disorder [Unknown]
  - Weight increased [Unknown]
  - Loss of consciousness [Recovered/Resolved]
  - Head injury [Recovering/Resolving]
  - International normalised ratio abnormal [Not Recovered/Not Resolved]
  - Pain in extremity [Unknown]
  - Injection site bruising [Unknown]
  - Fall [Unknown]
  - Balance disorder [Unknown]
  - Pneumonia [Recovered/Resolved]
  - Anaemia [Recovering/Resolving]
  - Condition aggravated [Unknown]
  - Ovarian cyst [Unknown]
  - Kidney infection [Recovered/Resolved]
  - Blood magnesium abnormal [Unknown]
  - Bladder disorder [Recovered/Resolved]
  - Abnormal loss of weight [Unknown]
  - Blood potassium abnormal [Unknown]
  - Bladder injury [Recovered/Resolved]
  - Cardiac failure congestive [Recovering/Resolving]
  - Urinary tract disorder [Recovered/Resolved]
  - Increased tendency to bruise [Not Recovered/Not Resolved]
  - Gait disturbance [Unknown]
  - Insurance issue [Unknown]

NARRATIVE: CASE EVENT DATE: 2008
